FAERS Safety Report 4352060-4 (Version None)
Quarter: 2004Q2

REPORT INFORMATION
  Report Type: 
  Country: None (occurrence: None)
  Receive Date: 20040429
  Receipt Date: 20040129
  Transmission Date: 20050107
  Serious: No
  Sender: FDA-Public Use
  Company Number: 2004-113354-NL

PATIENT
  Age: 28 Year
  Sex: Female
  Weight: 58.9 kg

DRUGS (3)
  1. NUVARING [Suspect]
     Indication: CONTRACEPTION
     Dosage: DF DAILY VAGINAL
     Route: 067
  2. ISONIAZID [Suspect]
     Indication: TUBERCULOSIS
     Dosage: DF DAILY
  3. SYNTHROID [Concomitant]

REACTIONS (2)
  - FATIGUE [None]
  - NAUSEA [None]
